FAERS Safety Report 9166258 (Version 3)
Quarter: 2013Q2

REPORT INFORMATION
  Report Type: Spontaneous
  Country: DE (occurrence: DE)
  Receive Date: 20130315
  Receipt Date: 20130423
  Transmission Date: 20140414
  Serious: Yes (Other)
  Sender: FDA-Public Use
  Company Number: DE-BAUSCH-BL-2013-001488

PATIENT
  Age: 83 Year
  Sex: Female
  Weight: 80 kg

DRUGS (5)
  1. DEXA EDO [Suspect]
     Indication: ULCERATIVE KERATITIS
     Route: 047
     Dates: start: 201204, end: 201205
  2. DEXA EDO [Suspect]
     Route: 047
     Dates: start: 201205, end: 201302
  3. DEXA EDO [Suspect]
     Route: 047
     Dates: start: 20130214, end: 201303
  4. FLOXAL EDO AUGENTROPFEN [Suspect]
     Indication: ULCERATIVE KERATITIS
     Route: 047
  5. ATACAND [Concomitant]
     Indication: PRODUCT USED FOR UNKNOWN INDICATION

REACTIONS (3)
  - Wrong technique in drug usage process [Unknown]
  - Corneal deposits [Not Recovered/Not Resolved]
  - Medication error [Unknown]
